FAERS Safety Report 6526236-1 (Version None)
Quarter: 2009Q4

REPORT INFORMATION
  Report Type: 
  Country: None (occurrence: None)
  Receive Date: 20091228
  Receipt Date: 20091208
  Transmission Date: 20100525
  Serious: Yes (Other)
  Sender: FDA-Public Use
  Company Number: 20090589

PATIENT
  Age: 25 Year
  Sex: Female

DRUGS (3)
  1. MAGNESIUM SULFATE INJECTION,           USP (2602-25) [Suspect]
     Indication: TOCOLYSIS
     Dosage: 6G THEN 3 G.H THEN 1.5 G.H INTRAVENOUS
     Route: 042
  2. NIFEDIPINE [Concomitant]
  3. BETAMETHASONE [Concomitant]

REACTIONS (5)
  - CHEST DISCOMFORT [None]
  - DRUG EXPOSURE DURING PREGNANCY [None]
  - HYPOCALCAEMIA [None]
  - HYPOTENSION [None]
  - MUSCLE CONTRACTURE [None]
